FAERS Safety Report 7914997-6 (Version None)
Quarter: 2011Q4

REPORT INFORMATION
  Report Type: 
  Country: None (occurrence: None)
  Receive Date: 20111115
  Receipt Date: 20111102
  Transmission Date: 20120403
  Serious: Yes (Hospitalization)
  Sender: FDA-Public Use
  Company Number: JP-ROCHE-787619

PATIENT
  Sex: Female
  Weight: 21 kg

DRUGS (25)
  1. ACTEMRA [Suspect]
     Route: 042
     Dates: start: 20110713, end: 20110831
  2. PREDNISOLONE [Concomitant]
     Route: 048
     Dates: start: 20101229, end: 20110104
  3. PREDNISOLONE [Concomitant]
     Route: 048
     Dates: start: 20110310, end: 20110629
  4. ALFAROL [Concomitant]
     Route: 048
     Dates: start: 20110617, end: 20110913
  5. ACTEMRA [Suspect]
     Route: 041
     Dates: start: 20110126, end: 20110223
  6. ACTEMRA [Suspect]
     Route: 041
     Dates: start: 20110309, end: 20110420
  7. METHYLPREDNISOLONE SODIUM SUCCINATE [Concomitant]
     Route: 042
     Dates: start: 20101222, end: 20101224
  8. PREDNISOLONE [Concomitant]
     Route: 048
     Dates: start: 20110105, end: 20110201
  9. PREDNISOLONE [Concomitant]
     Route: 048
     Dates: start: 20110223, end: 20110309
  10. PREDNISOLONE [Concomitant]
     Dosage: FORM: PRE ORAL AGENT
     Route: 048
     Dates: start: 20101210, end: 20101228
  11. ALFAROL [Concomitant]
     Route: 048
     Dates: start: 20110521, end: 20110616
  12. ACTEMRA [Suspect]
     Route: 041
     Dates: start: 20110430, end: 20110430
  13. ACTEMRA [Suspect]
     Route: 041
     Dates: start: 20110506, end: 20110506
  14. PREDNISOLONE [Concomitant]
     Route: 048
     Dates: start: 20110727, end: 20110816
  15. NAPROXEN [Concomitant]
     Dosage: FORM: PRE ORAL AGENT
     Route: 048
     Dates: start: 20110521, end: 20110616
  16. ACTEMRA [Suspect]
     Indication: JUVENILE ARTHRITIS
     Route: 041
     Dates: start: 20101225, end: 20110118
  17. METHYLPREDNISOLONE SODIUM SUCCINATE [Concomitant]
     Route: 042
     Dates: start: 20101215, end: 20101217
  18. ACTEMRA [Suspect]
     Route: 041
     Dates: start: 20110514, end: 20110617
  19. FUNGIZONE [Concomitant]
  20. ACTEMRA [Suspect]
     Route: 042
  21. METHYLPREDNISOLONE SODIUM SUCCINATE [Concomitant]
     Route: 042
     Dates: start: 20101210, end: 20101228
  22. PREDNISOLONE [Concomitant]
     Route: 048
     Dates: start: 20110202, end: 20110222
  23. PREDNISOLONE [Concomitant]
     Route: 048
     Dates: start: 20110817, end: 20110830
  24. PREDNISOLONE [Concomitant]
     Route: 048
  25. FUNGIZONE [Concomitant]
     Dosage: FORM: PRE ORAL AGENT
     Route: 048

REACTIONS (9)
  - SERUM FERRITIN INCREASED [None]
  - ALANINE AMINOTRANSFERASE INCREASED [None]
  - RASH [None]
  - HEPATIC FUNCTION ABNORMAL [None]
  - NASOPHARYNGITIS [None]
  - BLOOD LACTATE DEHYDROGENASE INCREASED [None]
  - HISTIOCYTOSIS HAEMATOPHAGIC [None]
  - PLATELET COUNT DECREASED [None]
  - ASPARTATE AMINOTRANSFERASE INCREASED [None]
